FAERS Safety Report 6596421-1 (Version None)
Quarter: 2010Q1

REPORT INFORMATION
  Report Type: 
  Country: None (occurrence: None)
  Receive Date: 20100223
  Receipt Date: 20100215
  Transmission Date: 20100710
  Serious: Yes (Other)
  Sender: FDA-Public Use
  Company Number: CHPA2010NL03327

PATIENT
  Sex: Male

DRUGS (1)
  1. OTRIVIN [Suspect]
     Indication: NASAL CONGESTION
     Dosage: UNK, UNK
     Route: 045

REACTIONS (1)
  - DRUG DEPENDENCE [None]
